FAERS Safety Report 6025070-9 (Version None)
Quarter: 2008Q4

REPORT INFORMATION
  Report Type: 
  Country: None (occurrence: None)
  Receive Date: 20081224
  Receipt Date: 20081219
  Transmission Date: 20090506
  Serious: Yes (Hospitalization)
  Sender: FDA-Public Use
  Company Number: FABR-1000417

PATIENT
  Age: 60 Year
  Sex: Male
  Weight: 60 kg

DRUGS (9)
  1. FABRAZYME [Suspect]
     Indication: FABRY'S DISEASE
     Dosage: Q2W, INTRAVENOUS
     Route: 042
     Dates: start: 20020101
  2. METOPROLOL TARTRATE [Concomitant]
  3. SIMVASTATIN [Concomitant]
  4. LYRICA [Concomitant]
  5. VALORON (CLONIXIN LYSINATE) [Concomitant]
  6. ACETYLSALICYLIC ACID SRT [Concomitant]
  7. OMEP (OMEPRAZOLE) [Concomitant]
  8. TORSEMIDE [Concomitant]
  9. ANTIBIOTICS [Concomitant]

REACTIONS (6)
  - ANGINA PECTORIS [None]
  - BONE PAIN [None]
  - GAIT DISTURBANCE [None]
  - HEADACHE [None]
  - OEDEMA PERIPHERAL [None]
  - PAIN IN EXTREMITY [None]
